FAERS Safety Report 21634830 (Version 2)
Quarter: 2022Q4

REPORT INFORMATION
  Report Type: Report from Study
  Country: US (occurrence: US)
  Receive Date: 20221123
  Receipt Date: 20221228
  Transmission Date: 20230113
  Serious: No
  Sender: FDA-Public Use
  Company Number: US-ABBVIE-22K-163-4527754-00

PATIENT
  Age: 70 Year
  Sex: Female

DRUGS (2)
  1. IMBRUVICA [Suspect]
     Active Substance: IBRUTINIB
     Indication: Chronic lymphocytic leukaemia
     Route: 048
     Dates: start: 201807
  2. ZITHROMAX [Suspect]
     Active Substance: AZITHROMYCIN DIHYDRATE
     Indication: Sinus disorder

REACTIONS (4)
  - Sinus disorder [Unknown]
  - COVID-19 [Unknown]
  - Dizziness [Unknown]
  - Tinnitus [Recovered/Resolved]

NARRATIVE: CASE EVENT DATE: 20221117
